FAERS Safety Report 20572459 (Version 1)
Quarter: 2022Q1

REPORT INFORMATION
  Report Type: Other
  Country: AE (occurrence: None)
  Receive Date: 20220309
  Receipt Date: 20220309
  Transmission Date: 20220423
  Serious: Yes (Hospitalization, Other)
  Sender: FDA-Public Use
  Company Number: AE-ROCHE-3005940

PATIENT
  Age: 49 Year
  Sex: Female

DRUGS (2)
  1. HERCEPTIN [Suspect]
     Active Substance: TRASTUZUMAB
     Indication: Breast cancer
     Route: 058
  2. PERJETA [Suspect]
     Active Substance: PERTUZUMAB
     Indication: Breast cancer
     Route: 042

REACTIONS (11)
  - Pyrexia [Unknown]
  - Pain [Unknown]
  - White blood cell count decreased [Unknown]
  - Febrile neutropenia [Unknown]
  - Blood pressure abnormal [Unknown]
  - Gastrointestinal disorder [Unknown]
  - Neoplasm malignant [Unknown]
  - Fatigue [Unknown]
  - Procedural pain [Unknown]
  - Platelet count increased [Unknown]
  - White blood cell count increased [Unknown]
